FAERS Safety Report 8277499-6 (Version None)
Quarter: 2012Q2

REPORT INFORMATION
  Report Type: 
  Country: None (occurrence: None)
  Receive Date: 20120412
  Receipt Date: 20120404
  Transmission Date: 20120825
  Serious: Yes (Other)
  Sender: FDA-Public Use
  Company Number: US-BRISTOL-MYERS SQUIBB COMPANY-16504102

PATIENT
  Sex: Female

DRUGS (3)
  1. LEXAPRO [Suspect]
  2. ABILIFY [Suspect]
  3. EFFEXOR [Suspect]

REACTIONS (2)
  - OEDEMA [None]
  - PERICARDIAL EFFUSION [None]
